FAERS Safety Report 25188932 (Version 1)
Quarter: 2025Q2

REPORT INFORMATION
  Report Type: Spontaneous
  Country: FR (occurrence: FR)
  Receive Date: 20250411
  Receipt Date: 20250411
  Transmission Date: 20250716
  Serious: Yes (Hospitalization)
  Sender: MYLAN
  Company Number: FR-MYLANLABS-2025M1030527

PATIENT
  Age: 17 Year
  Sex: Female

DRUGS (20)
  1. VALPROATE [Suspect]
     Active Substance: VALPROIC ACID
     Indication: Intellectual disability
  2. VALPROATE [Suspect]
     Active Substance: VALPROIC ACID
     Route: 065
  3. VALPROATE [Suspect]
     Active Substance: VALPROIC ACID
     Route: 065
  4. VALPROATE [Suspect]
     Active Substance: VALPROIC ACID
  5. RISPERIDONE [Suspect]
     Active Substance: RISPERIDONE
     Indication: Intellectual disability
  6. RISPERIDONE [Suspect]
     Active Substance: RISPERIDONE
     Route: 065
  7. RISPERIDONE [Suspect]
     Active Substance: RISPERIDONE
     Route: 065
  8. RISPERIDONE [Suspect]
     Active Substance: RISPERIDONE
  9. OLANZAPINE [Suspect]
     Active Substance: OLANZAPINE
     Indication: Intellectual disability
  10. OLANZAPINE [Suspect]
     Active Substance: OLANZAPINE
     Route: 065
  11. OLANZAPINE [Suspect]
     Active Substance: OLANZAPINE
     Route: 065
  12. OLANZAPINE [Suspect]
     Active Substance: OLANZAPINE
  13. QUETIAPINE [Suspect]
     Active Substance: QUETIAPINE
     Indication: Intellectual disability
  14. QUETIAPINE [Suspect]
     Active Substance: QUETIAPINE
     Route: 065
  15. QUETIAPINE [Suspect]
     Active Substance: QUETIAPINE
     Route: 065
  16. QUETIAPINE [Suspect]
     Active Substance: QUETIAPINE
  17. HALDOL [Suspect]
     Active Substance: HALOPERIDOL
     Indication: Intellectual disability
  18. HALDOL [Suspect]
     Active Substance: HALOPERIDOL
     Route: 065
  19. HALDOL [Suspect]
     Active Substance: HALOPERIDOL
     Route: 065
  20. HALDOL [Suspect]
     Active Substance: HALOPERIDOL

REACTIONS (2)
  - Drug ineffective [Unknown]
  - Off label use [Unknown]
